FAERS Safety Report 6664783-2 (Version None)
Quarter: 2010Q1

REPORT INFORMATION
  Report Type: 
  Country: None (occurrence: None)
  Receive Date: 20100330
  Receipt Date: 20100315
  Transmission Date: 20100710
  Serious: Yes (Hospitalization)
  Sender: FDA-Public Use
  Company Number: 008843

PATIENT
  Sex: Male

DRUGS (3)
  1. KEPPRA [Suspect]
     Indication: EPILEPSY
     Dosage: 2 G ORAL
     Route: 048
     Dates: start: 20080101, end: 20100302
  2. LAMICTAL [Suspect]
     Indication: EPILEPSY
     Dosage: (40 MG ORAL)
     Route: 048
     Dates: start: 20100205, end: 20100223
  3. DEPAKIN (DEPKIN) [Suspect]
     Indication: EPILEPSY
     Dosage: 500 MG BID ORAL
     Route: 048
     Dates: start: 20000101, end: 20100302

REACTIONS (2)
  - STEVENS-JOHNSON SYNDROME [None]
  - THROMBOCYTOPENIA [None]
